FAERS Safety Report 5756775-2 (Version None)
Quarter: 2008Q2

REPORT INFORMATION
  Report Type: 
  Country: None (occurrence: None)
  Receive Date: 20080529
  Receipt Date: 20080513
  Transmission Date: 20081010
  Serious: Yes (Other)
  Sender: FDA-Public Use
  Company Number: 2008AL004832

PATIENT
  Sex: Female

DRUGS (2)
  1. DIGOXIN [Suspect]
     Indication: DRUG USE FOR UNKNOWN INDICATION
     Dosage: 0.25 MG UNK UNK
  2. COUMADIN [Concomitant]

REACTIONS (3)
  - CONFUSIONAL STATE [None]
  - OVERDOSE [None]
  - TRANSIENT ISCHAEMIC ATTACK [None]
